FAERS Safety Report 9847284 (Version 2)
Quarter: 2014Q1

REPORT INFORMATION
  Report Type: Report from Study
  Country: US (occurrence: US)
  Receive Date: 20140127
  Receipt Date: 20140127
  Transmission Date: 20141002
  Serious: Yes (Hospitalization, Other)
  Sender: FDA-Public Use
  Company Number: US-ABBVIE-11P-163-0706583-00

PATIENT
  Age: 72 Year
  Sex: Female

DRUGS (2)
  1. HUMIRA [Suspect]
     Indication: RHEUMATOID ARTHRITIS
     Dates: start: 201008
  2. HUMIRA [Suspect]
     Dates: start: 201102, end: 2013

REACTIONS (11)
  - Delirium [Recovered/Resolved]
  - Hip fracture [Recovered/Resolved]
  - Drug ineffective [Unknown]
  - Malaise [Unknown]
  - Injection site extravasation [Unknown]
  - Incorrect dose administered [Unknown]
  - Pain [Unknown]
  - Pain [Not Recovered/Not Resolved]
  - Chondropathy [Not Recovered/Not Resolved]
  - Anaesthetic complication [Recovered/Resolved]
  - Drug ineffective [Not Recovered/Not Resolved]
